FAERS Safety Report 21687858 (Version 3)
Quarter: 2025Q3

REPORT INFORMATION
  Report Type: Spontaneous
  Country: GB (occurrence: GB)
  Receive Date: 20221206
  Receipt Date: 20250829
  Transmission Date: 20251020
  Serious: Yes (Death)
  Sender: ORGANON
  Company Number: GB-MLMSERVICE-20221130-3952816-3

PATIENT
  Age: 40 Year
  Sex: Female

DRUGS (3)
  1. MIRTAZAPINE [Suspect]
     Active Substance: MIRTAZAPINE
     Route: 048
  2. METHADONE [Suspect]
     Active Substance: METHADONE HYDROCHLORIDE
  3. PREGABALIN [Suspect]
     Active Substance: PREGABALIN

REACTIONS (1)
  - Toxicity to various agents [Fatal]
